FAERS Safety Report 8041964-7 (Version None)
Quarter: 2012Q1

REPORT INFORMATION
  Report Type: 
  Country: None (occurrence: None)
  Receive Date: 20120112
  Receipt Date: 20120106
  Transmission Date: 20120608
  Serious: Yes (Hospitalization)
  Sender: FDA-Public Use
  Company Number: PHHY2012BR001525

PATIENT
  Sex: Male
  Weight: 21 kg

DRUGS (1)
  1. TRILEPTAL [Suspect]
     Indication: CONVULSION
     Dosage: 6% 100ML, 4 ML IN THE MORNING AND 6 ML AT NIGHT
     Route: 048
     Dates: end: 20120108

REACTIONS (4)
  - PYREXIA [None]
  - CONVULSION [None]
  - PLATELET COUNT DECREASED [None]
  - DENGUE FEVER [None]
